FAERS Safety Report 12406446 (Version 1)
Quarter: 2016Q2

REPORT INFORMATION
  Report Type: Spontaneous
  Country: US (occurrence: None)
  Receive Date: 20160525
  Receipt Date: 20160525
  Transmission Date: 20160815
  Serious: Yes (Hospitalization, Other)
  Sender: FDA-Public Use
  Company Number: None

PATIENT
  Age: 58 Year
  Sex: Female
  Weight: 72.58 kg

DRUGS (5)
  1. DIETHYPROPRION [Concomitant]
  2. ALLI [Concomitant]
     Active Substance: ORLISTAT
  3. ACYCLOVIR. [Concomitant]
     Active Substance: ACYCLOVIR
  4. BELVIQ [Suspect]
     Active Substance: LORCASERIN HYDROCHLORIDE
     Indication: OBESITY
     Route: 048
     Dates: start: 20150630, end: 20150812
  5. MULTIVITAMIN [Concomitant]
     Active Substance: VITAMINS

REACTIONS (7)
  - Cognitive disorder [None]
  - Vision blurred [None]
  - Blood glucose decreased [None]
  - Dizziness [None]
  - Fatigue [None]
  - Liver function test increased [None]
  - Sinusitis [None]

NARRATIVE: CASE EVENT DATE: 20150818
